FAERS Safety Report 7232587-8 (Version None)
Quarter: 2011Q1

REPORT INFORMATION
  Report Type: 
  Country: None (occurrence: None)
  Receive Date: 20110107
  Receipt Date: 20101228
  Transmission Date: 20110831
  Serious: Yes (Hospitalization)
  Sender: FDA-Public Use
  Company Number: AU-1184480

PATIENT
  Age: 36 Year
  Sex: Male

DRUGS (1)
  1. CILOXAN [Suspect]
     Dosage: 2 GTT Q15 MIN; THIEN Q1HR OPHTHALMIC
     Route: 047
     Dates: start: 20101220

REACTIONS (2)
  - ULCERATIVE KERATITIS [None]
  - CONDITION AGGRAVATED [None]
